FAERS Safety Report 20443739 (Version 1)
Quarter: 2022Q1

REPORT INFORMATION
  Report Type: Spontaneous
  Country: CN (occurrence: CN)
  Receive Date: 20220208
  Receipt Date: 20220208
  Transmission Date: 20220423
  Serious: Yes (Hospitalization)
  Sender: FDA-Public Use
  Company Number: CN-PFIZER INC-202200157718

PATIENT
  Age: 32 Year
  Sex: Female
  Weight: 53 kg

DRUGS (5)
  1. ZITHROMAX [Suspect]
     Active Substance: AZITHROMYCIN DIHYDRATE
     Indication: Antiinflammatory therapy
     Dosage: 0.5 G, 1X/DAY
     Route: 048
     Dates: start: 20220113, end: 20220114
  2. ZITHROMAX [Suspect]
     Active Substance: AZITHROMYCIN DIHYDRATE
     Indication: Inflammation
  3. METRONIDAZOLE [Suspect]
     Active Substance: METRONIDAZOLE
     Indication: Antiinflammatory therapy
     Dosage: 0.4 G, 3X/DAY
     Route: 048
     Dates: start: 20220113, end: 20220114
  4. METRONIDAZOLE [Suspect]
     Active Substance: METRONIDAZOLE
     Indication: Inflammation
  5. NIFURATEL [Concomitant]
     Active Substance: NIFURATEL
     Dosage: UNK (FOR EXTERNAL USE)

REACTIONS (3)
  - Rash papular [Recovered/Resolved]
  - Discomfort [Recovered/Resolved]
  - Off label use [Unknown]

NARRATIVE: CASE EVENT DATE: 20220113
